FAERS Safety Report 8357663-8 (Version None)
Quarter: 2012Q2

REPORT INFORMATION
  Report Type: 
  Country: None (occurrence: None)
  Receive Date: 20120514
  Receipt Date: 20120509
  Transmission Date: 20120825
  Serious: Yes (Life-Threatening, Hospitalization, Congenital Anomaly, Other)
  Sender: FDA-Public Use
  Company Number: US-PFIZER INC-2011159707

PATIENT
  Sex: Female
  Weight: 4 kg

DRUGS (3)
  1. SERTRALINE HYDROCHLORIDE [Suspect]
     Indication: DEPRESSION
     Dosage: 100 MG ONE TABLET DAILY
     Route: 064
     Dates: start: 20060101
  2. PERCOCET [Concomitant]
     Dosage: UNK
     Route: 064
  3. ZOLOFT [Suspect]
     Indication: DEPRESSION
     Dosage: 100 MG ONE TABLET DAILY
     Route: 064
     Dates: start: 20050613

REACTIONS (14)
  - CONUS MEDULLARIS SYNDROME [None]
  - FEMALE GENITAL TRACT FISTULA [None]
  - PATENT DUCTUS ARTERIOSUS [None]
  - AORTIC VALVE INCOMPETENCE [None]
  - CONGENITAL ANOMALY [None]
  - PERSISTENT CLOACA [None]
  - VACTERL SYNDROME [None]
  - CAUDAL REGRESSION SYNDROME [None]
  - VESICOURETERIC REFLUX [None]
  - ANAL ATRESIA [None]
  - TRICUSPID VALVE INCOMPETENCE [None]
  - MITRAL VALVE INCOMPETENCE [None]
  - SYRINGOMYELIA [None]
  - MATERNAL EXPOSURE TIMING UNSPECIFIED [None]
